FAERS Safety Report 9325242 (Version 2)
Quarter: 2013Q2

REPORT INFORMATION
  Report Type: Spontaneous
  Country: JP (occurrence: JP)
  Receive Date: 20130604
  Receipt Date: 20130611
  Transmission Date: 20140414
  Serious: No
  Sender: FDA-Public Use
  Company Number: JP-009507513-1305JPN016072

PATIENT
  Age: 56 Year
  Sex: Male

DRUGS (6)
  1. EMEND [Suspect]
     Indication: PROPHYLAXIS OF NAUSEA AND VOMITING
     Dosage: 125 MG, QD
     Route: 048
     Dates: start: 20130227, end: 20130227
  2. EMEND [Suspect]
     Dosage: 80 MG, QD
     Route: 048
     Dates: start: 20130228, end: 20130301
  3. OXALIPLATIN [Suspect]
     Indication: COLON CANCER
     Dosage: 85 MG/M2, QD
     Route: 041
     Dates: start: 20130227
  4. FLUOROURACIL [Suspect]
     Indication: COLON CANCER
     Dosage: 2800 MG/M2 PER DAY
     Route: 041
     Dates: start: 20130227
  5. ALOXI [Concomitant]
     Dosage: UNK
     Dates: start: 20130227, end: 20130227
  6. DEXAMETHASONE SODIUM PHOSPHATE [Concomitant]
     Dosage: UNK
     Dates: start: 20130227

REACTIONS (1)
  - Dermatitis acneiform [Recovered/Resolved]
